FAERS Safety Report 16166419 (Version 1)
Quarter: 2019Q2

REPORT INFORMATION
  Report Type: Spontaneous
  Country: US (occurrence: US)
  Receive Date: 20190406
  Receipt Date: 20190406
  Transmission Date: 20190711
  Serious: No
  Sender: FDA-Public Use
  Company Number: US-JNJFOC-20190327126

PATIENT
  Age: 54 Year
  Sex: Female
  Weight: 40.82 kg

DRUGS (8)
  1. DURAGESIC [Suspect]
     Active Substance: FENTANYL
     Indication: OVARIAN CANCER
     Route: 062
     Dates: start: 20190310, end: 20190313
  2. LORAZEPAM. [Concomitant]
     Active Substance: LORAZEPAM
     Indication: ANXIETY
     Route: 065
  3. MORPHINE [Concomitant]
     Active Substance: MORPHINE
     Indication: OVARIAN CANCER
     Route: 048
  4. DURAGESIC [Suspect]
     Active Substance: FENTANYL
     Indication: OVARIAN CANCER
     Route: 062
     Dates: start: 20190317
  5. OMEPRAZOLE. [Concomitant]
     Active Substance: OMEPRAZOLE
     Indication: NAUSEA
     Route: 065
  6. ONDANSETRON [Concomitant]
     Active Substance: ONDANSETRON
     Indication: NAUSEA
     Route: 065
  7. DURAGESIC [Suspect]
     Active Substance: FENTANYL
     Indication: OVARIAN CANCER
     Route: 062
     Dates: start: 20190313, end: 20190317
  8. DURAGESIC [Suspect]
     Active Substance: FENTANYL
     Indication: OVARIAN CANCER
     Route: 062
     Dates: start: 20190314, end: 20190317

REACTIONS (3)
  - Wrong technique in product usage process [Unknown]
  - Wrong technique in product usage process [Unknown]
  - Drug titration error [Not Recovered/Not Resolved]

NARRATIVE: CASE EVENT DATE: 20190313
